FAERS Safety Report 14594655 (Version 4)
Quarter: 2018Q2

REPORT INFORMATION
  Report Type: Report from Study
  Country: US (occurrence: US)
  Receive Date: 20180302
  Receipt Date: 20180517
  Transmission Date: 20180711
  Serious: Yes (Hospitalization)
  Sender: FDA-Public Use
  Company Number: US-ACTELION-A-US2018-168198

PATIENT
  Age: 49 Year
  Sex: Female

DRUGS (36)
  1. VELPHORO [Concomitant]
     Active Substance: FERRIC OXYHYDROXIDE
     Dosage: 500 MG, TID
     Dates: start: 20170919
  2. PROCARDIA [Concomitant]
     Active Substance: NIFEDIPINE
     Dosage: 30 MG, QD
     Route: 048
     Dates: start: 20170828
  3. SENSIPAR [Concomitant]
     Active Substance: CINACALCET HYDROCHLORIDE
     Dosage: 30 MG, QD
     Route: 048
     Dates: start: 2010
  4. ESTRACE [Concomitant]
     Active Substance: ESTRADIOL
  5. CINACALCET. [Concomitant]
     Active Substance: CINACALCET
  6. VITAMIN B COMPLEX [Concomitant]
     Active Substance: CYANOCOBALAMIN\DEXPANTHENOL\NIACINAMIDE\PYRIDOXINE HYDROCHLORIDE\RIBOFLAVIN 5^-PHOSPHATE SODIUM\THIAMINE HYDROCHLORIDE\VITAMIN B COMPLEX
     Dosage: UNK
     Dates: start: 20140829
  7. VOLTAREN [Concomitant]
     Active Substance: DICLOFENAC SODIUM
     Dosage: 1 %, UNK
  8. TRAMADOL. [Concomitant]
     Active Substance: TRAMADOL
  9. PROMANTINE [Concomitant]
     Dosage: UNK
     Route: 048
     Dates: start: 20170208
  10. ATIVAN [Concomitant]
     Active Substance: LORAZEPAM
     Dosage: UNK, QD
     Dates: start: 20171214
  11. CIPRO [Concomitant]
     Active Substance: CIPROFLOXACIN HYDROCHLORIDE
     Dosage: 250 MG, BID
     Dates: start: 201802, end: 201803
  12. MIDODRINE [Concomitant]
     Active Substance: MIDODRINE
     Dosage: 5 MG, UNK
     Dates: start: 2017
  13. ATENOLOL. [Concomitant]
     Active Substance: ATENOLOL
  14. ZYRTEC [Concomitant]
     Active Substance: CETIRIZINE HYDROCHLORIDE
     Dosage: 10 MG, QD
     Dates: start: 20140917
  15. PRILOSEC [Concomitant]
     Active Substance: OMEPRAZOLE MAGNESIUM
     Dosage: 200 UNK, BID
     Dates: start: 20171214
  16. VENTOLIN [Concomitant]
     Active Substance: ALBUTEROL SULFATE
     Dosage: 90 MCG, UNK
     Dates: start: 20170713
  17. QVAR [Concomitant]
     Active Substance: BECLOMETHASONE DIPROPIONATE
     Dosage: 80 MCG, UNK
     Dates: start: 2014
  18. TYLENOL WITH CODEINE [Concomitant]
     Active Substance: ACETAMINOPHEN\CODEINE PHOSPHATE
     Dosage: 1-2 TAB Q4 ORN
     Dates: start: 2014
  19. OPSUMIT [Suspect]
     Active Substance: MACITENTAN
     Indication: PULMONARY ARTERIAL HYPERTENSION
     Dosage: 10 MG, QD
     Route: 048
     Dates: start: 20170113
  20. PERCOCET [Concomitant]
     Active Substance: ACETAMINOPHEN\OXYCODONE HYDROCHLORIDE
     Dosage: 7.5/325
     Dates: start: 20170830
  21. RENVELA [Concomitant]
     Active Substance: SEVELAMER CARBONATE
     Dosage: 800 MG, TID
     Route: 048
     Dates: start: 2013
  22. AVENTYL [Concomitant]
     Active Substance: NORTRIPTYLINE HYDROCHLORIDE
     Dosage: 200 MG, QD, 2 CAPSULES AT BEDTIME
     Dates: start: 20170303
  23. SUCROFERRIC OXYHYDROXIDE [Concomitant]
     Active Substance: FERRIC OXYHYDROXIDE
     Dosage: 500 MG, TID
     Dates: start: 201802
  24. METOPROLOL. [Concomitant]
     Active Substance: METOPROLOL
     Dosage: 25 MG, QD
     Dates: start: 2016, end: 201803
  25. EFFEXOR [Concomitant]
     Active Substance: VENLAFAXINE HYDROCHLORIDE
  26. NORMODYNE [Concomitant]
     Active Substance: LABETALOL HYDROCHLORIDE
     Dosage: 200 MG, QD
     Dates: start: 20161128
  27. NEPHRO-VITE [Concomitant]
     Dosage: 1 UNK, QD
     Dates: start: 2014
  28. CYCLOBENZAPRINE. [Concomitant]
     Active Substance: CYCLOBENZAPRINE
  29. DIPROLENE AF [Concomitant]
     Active Substance: BETAMETHASONE DIPROPIONATE
     Dosage: 0.05 %, BID
     Route: 061
     Dates: start: 20170124
  30. FLONASE [Concomitant]
     Active Substance: FLUTICASONE PROPIONATE
     Dosage: 2 SPAYS EACH NOSTRIL QD
     Dates: start: 20170113
  31. ZITHROMAX [Concomitant]
     Active Substance: AZITHROMYCIN DIHYDRATE
     Dosage: 250 MG, QD
     Dates: start: 20171207
  32. PROCTOZONE HC [Concomitant]
     Active Substance: HYDROCORTISONE
     Dosage: 2.5 %, TID
     Route: 054
  33. TOPROL XL [Concomitant]
     Active Substance: METOPROLOL SUCCINATE
     Dosage: 25 MG, QD
     Dates: start: 20170905
  34. LIDOCAINE 5% EXTRA [Concomitant]
     Dosage: UNK, BID
     Route: 061
     Dates: start: 20170317
  35. LORAZEPAM. [Concomitant]
     Active Substance: LORAZEPAM
     Dosage: 1/2 TO 1 MG PRN
     Dates: start: 201803
  36. ATROVENT [Concomitant]
     Active Substance: IPRATROPIUM BROMIDE

REACTIONS (19)
  - Pulmonary oedema [Unknown]
  - Musculoskeletal pain [Unknown]
  - Multi-organ disorder [Unknown]
  - Heart rate increased [Recovered/Resolved]
  - Pulmonary arterial hypertension [Recovered/Resolved]
  - Right ventricular dysfunction [Recovered/Resolved]
  - Groin pain [Unknown]
  - Fluid overload [Unknown]
  - Sciatica [Unknown]
  - Sepsis [Unknown]
  - Hypotension [Recovering/Resolving]
  - Condition aggravated [Recovering/Resolving]
  - Influenza [Unknown]
  - Respiratory failure [Unknown]
  - Lung infiltration [Unknown]
  - Pericardial effusion [Recovered/Resolved]
  - Cardiomegaly [Unknown]
  - Haemodialysis [Recovering/Resolving]
  - Sinus tachycardia [Recovering/Resolving]

NARRATIVE: CASE EVENT DATE: 20180224
